FAERS Safety Report 18025932 (Version 1)
Quarter: 2020Q3

REPORT INFORMATION
  Report Type: Spontaneous
  Country: US (occurrence: US)
  Receive Date: 20200715
  Receipt Date: 20200715
  Transmission Date: 20201103
  Serious: Yes (Death, Other)
  Sender: FDA-Public Use
  Company Number: US-PFIZER INC-2020268406

PATIENT
  Age: 66 Year
  Sex: Male

DRUGS (4)
  1. ISORDIL [Concomitant]
     Active Substance: ISOSORBIDE DINITRATE
     Indication: MYOCARDIAL INFARCTION
     Dosage: 10 MG, 4X/DAY
  2. ISORDIL [Concomitant]
     Active Substance: ISOSORBIDE DINITRATE
     Indication: ANGINA UNSTABLE
  3. INDERAL [Suspect]
     Active Substance: PROPRANOLOL HYDROCHLORIDE
     Dosage: 40 MG, 4X/DAY
  4. INDERAL [Interacting]
     Active Substance: PROPRANOLOL HYDROCHLORIDE
     Dosage: 80 MG, 4X/DAY (DOUBLED THE DOSE)

REACTIONS (4)
  - Myocardial depression [Fatal]
  - Cardiac failure [Fatal]
  - Intentional product use issue [Fatal]
  - Drug interaction [Fatal]
